FAERS Safety Report 14826625 (Version 5)
Quarter: 2020Q1

REPORT INFORMATION
  Report Type: Spontaneous
  Country: US (occurrence: US)
  Receive Date: 20180430
  Receipt Date: 20200123
  Transmission Date: 20200409
  Serious: Yes (Other)
  Sender: FDA-Public Use
  Company Number: US-ASTRAZENECA-2018SE51129

PATIENT
  Age: 23166 Day
  Sex: Female
  Weight: 63 kg

DRUGS (19)
  1. PREVACID 24 HR [Suspect]
     Active Substance: LANSOPRAZOLE
     Route: 065
  2. ESTRADIOL. [Concomitant]
     Active Substance: ESTRADIOL
     Indication: HORMONE REPLACEMENT THERAPY
  3. NAPROXEN. [Concomitant]
     Active Substance: NAPROXEN
  4. PREVACID [Suspect]
     Active Substance: LANSOPRAZOLE
     Route: 065
  5. CLORAZEPATE DIPOTASSIUM. [Concomitant]
     Active Substance: CLORAZEPATE DIPOTASSIUM
     Dosage: TAKE ONE TO TWO TABLETS ORALLY EVERY NIGHT AT BEDTIME
     Dates: start: 20070321
  6. NEXIUM [Suspect]
     Active Substance: ESOMEPRAZOLE MAGNESIUM
     Route: 048
  7. PROTONIX [Suspect]
     Active Substance: PANTOPRAZOLE SODIUM
     Dosage: TAKE ONE TABLET ORALLY EVERY DAY
     Route: 065
     Dates: start: 20061124, end: 20070122
  8. METOPROLOL TARTRATE. [Concomitant]
     Active Substance: METOPROLOL TARTRATE
     Dosage: TAKE ONE TABLET ORALLY EVERY DAY
     Dates: start: 20070321
  9. NEXIUM 24HR [Suspect]
     Active Substance: ESOMEPRAZOLE MAGNESIUM
     Route: 048
  10. PROTONIX [Suspect]
     Active Substance: PANTOPRAZOLE SODIUM
     Dosage: TAKE ONE TABLET ORALLY EVERY DAY
     Route: 065
     Dates: start: 20070321
  11. LISINOPRIL. [Concomitant]
     Active Substance: LISINOPRIL
     Dosage: TAKE ONE TABLET ORALLY TAKE ONE TABLET ORALLY
     Dates: start: 20070321
  12. LOVASTATIN. [Concomitant]
     Active Substance: LOVASTATIN
     Dates: start: 20070321
  13. NEXIUM [Suspect]
     Active Substance: ESOMEPRAZOLE MAGNESIUM
     Route: 048
     Dates: start: 20071005
  14. PRILOSEC OTC [Suspect]
     Active Substance: OMEPRAZOLE MAGNESIUM
     Route: 048
  15. FUROSEMIDE. [Concomitant]
     Active Substance: FUROSEMIDE
     Indication: BLOOD CHOLESTEROL
     Dates: start: 20070321
  16. BUPROPION. [Concomitant]
     Active Substance: BUPROPION
     Dosage: TAKE ONE TABLET ORALLY EVERY DAY
  17. PRILOSEC [Suspect]
     Active Substance: OMEPRAZOLE MAGNESIUM
     Route: 048
  18. DEXILANT [Suspect]
     Active Substance: DEXLANSOPRAZOLE
     Route: 065
  19. LEVOTHROID [Concomitant]
     Active Substance: LEVOTHYROXINE SODIUM
     Dosage: TAKE 1 TABLET ORALLY ONCE DAILY
     Dates: start: 20070321

REACTIONS (4)
  - Chronic kidney disease [Unknown]
  - Renal injury [Unknown]
  - Rebound acid hypersecretion [Unknown]
  - Renal failure [Unknown]

NARRATIVE: CASE EVENT DATE: 20070904
